FAERS Safety Report 11828166 (Version 2)
Quarter: 2016Q4

REPORT INFORMATION
  Report Type: Spontaneous
  Country: US (occurrence: US)
  Receive Date: 20151211
  Receipt Date: 20161222
  Transmission Date: 20170206
  Serious: No
  Sender: FDA-Public Use
  Company Number: US-BAUSCH-BL-2015-003228

PATIENT
  Age: 48 Year
  Sex: Female

DRUGS (3)
  1. XENAZINE [Suspect]
     Active Substance: TETRABENAZINE
     Indication: HUNTINGTON^S DISEASE
     Route: 048
     Dates: start: 201412
  2. XENAZINE [Suspect]
     Active Substance: TETRABENAZINE
     Route: 048
     Dates: start: 20150106
  3. XENAZINE [Suspect]
     Active Substance: TETRABENAZINE
     Route: 048
     Dates: start: 201501

REACTIONS (3)
  - Drug dose omission [Unknown]
  - Somnolence [Not Recovered/Not Resolved]
  - Drug administration error [Not Recovered/Not Resolved]

NARRATIVE: CASE EVENT DATE: 20150106
